FAERS Safety Report 21417566 (Version 1)
Quarter: 2022Q4

REPORT INFORMATION
  Report Type: Spontaneous
  Country: FR (occurrence: FR)
  Receive Date: 20221006
  Receipt Date: 20221006
  Transmission Date: 20230113
  Serious: Yes (Other)
  Sender: FDA-Public Use
  Company Number: None

PATIENT
  Age: 36 Year
  Sex: Male
  Weight: 91 kg

DRUGS (10)
  1. RITUXIMAB [Suspect]
     Active Substance: RITUXIMAB
     Indication: Anti-neutrophil cytoplasmic antibody positive vasculitis
     Dosage: 810 MG/G, WEEKLY
     Route: 042
     Dates: start: 20220805, end: 20220805
  2. KAYEXALATE [Concomitant]
     Active Substance: SODIUM POLYSTYRENE SULFONATE
  3. BACTRIM [Concomitant]
     Active Substance: SULFAMETHOXAZOLE\TRIMETHOPRIM
     Dosage: 3 DF, WEEKLY
     Route: 048
  4. RAMIPRIL [Concomitant]
     Active Substance: RAMIPRIL
     Dosage: 10 MG, 1X/DAY
     Route: 048
  5. ATENOLOL [Concomitant]
     Active Substance: ATENOLOL
     Dosage: 50 MG, 1X/DAY
     Route: 048
  6. PREDNISOLONE [Concomitant]
     Active Substance: PREDNISOLONE
     Dosage: 5 MG, 1X/DAY
     Route: 048
  7. CHOLECALCIFEROL [Concomitant]
     Active Substance: CHOLECALCIFEROL
     Dosage: UNK
  8. PANTOPRAZOLE [Concomitant]
     Active Substance: PANTOPRAZOLE
     Dosage: 20 MG, 1X/DAY
     Route: 048
  9. SODIUM BICARBONATE [Concomitant]
     Active Substance: SODIUM BICARBONATE
     Dosage: 3 G, 1X/DAY
     Route: 048
  10. ACETAMINOPHEN [Concomitant]
     Active Substance: ACETAMINOPHEN
     Dosage: UNK

REACTIONS (1)
  - Hypothermia [Recovered/Resolved]

NARRATIVE: CASE EVENT DATE: 20220805
